FAERS Safety Report 5662000-3 (Version None)
Quarter: 2008Q2

REPORT INFORMATION
  Report Type: 
  Country: None (occurrence: None)
  Receive Date: 20080201
  Receipt Date: 20051013
  Transmission Date: 20081010
  Serious: Yes (Other)
  Sender: FDA-Public Use
  Company Number: 422813

PATIENT
  Age: 42 Year
  Sex: Female

DRUGS (7)
  1. COPEGUS [Suspect]
     Indication: HEPATITIS C
     Dosage: ORAL
     Route: 048
     Dates: start: 20050422, end: 20051005
  2. PEG-INTRON [Suspect]
     Indication: HEPATITIS C
     Dosage: SUBCUTANEOUS
     Route: 058
     Dates: start: 20050422
  3. IBUPROFEN [Concomitant]
  4. NEURONTIN [Concomitant]
  5. PERCOCET (OXYCODONE/PARACETAMOL) [Concomitant]
  6. PROZAC [Concomitant]
  7. XANAX [Concomitant]

REACTIONS (1)
  - ANAEMIA [None]
